FAERS Safety Report 4316412-0 (Version None)
Quarter: 2004Q1

REPORT INFORMATION
  Report Type: 
  Country: None (occurrence: None)
  Receive Date: 20040311
  Receipt Date: 20040227
  Transmission Date: 20041129
  Serious: Yes (Other)
  Sender: FDA-Public Use
  Company Number: 2004011731

PATIENT
  Age: 52 Year
  Sex: Male
  Weight: 65 kg

DRUGS (2)
  1. FLUCAM (AMPIROXICAM) [Suspect]
     Indication: BACK PAIN
     Dosage: DAILY ORAL
     Route: 048
     Dates: start: 20040209, end: 20040201
  2. DRUGS FOR TREATMENT OF PEPTIC ULCER [Concomitant]

REACTIONS (2)
  - DRUG ERUPTION [None]
  - ECZEMA [None]
